FAERS Safety Report 7771980-1 (Version None)
Quarter: 2011Q3

REPORT INFORMATION
  Report Type: 
  Country: None (occurrence: None)
  Receive Date: 20110922
  Receipt Date: 20110128
  Transmission Date: 20111222
  Serious: No
  Sender: FDA-Public Use
  Company Number: US-ASTRAZENECA-2011SE05112

PATIENT
  Age: 16 Year
  Sex: Female
  Weight: 52.2 kg

DRUGS (10)
  1. SEROQUEL [Suspect]
     Route: 048
     Dates: start: 20090101, end: 20110101
  2. SEROQUEL [Suspect]
     Route: 048
     Dates: start: 20090101, end: 20110101
  3. CONCERTA [Concomitant]
  4. SEROQUEL [Suspect]
     Indication: ATTENTION DEFICIT/HYPERACTIVITY DISORDER
     Route: 048
     Dates: start: 20070101
  5. SEROQUEL [Suspect]
     Route: 048
     Dates: start: 20070101
  6. STRATTERA [Concomitant]
  7. SEROQUEL [Suspect]
     Route: 048
     Dates: start: 20090101, end: 20110101
  8. SEROQUEL [Suspect]
     Route: 048
     Dates: start: 20090101, end: 20110101
  9. SEROQUEL [Suspect]
     Indication: BIPOLAR I DISORDER
     Route: 048
     Dates: start: 20070101
  10. SEROQUEL [Suspect]
     Indication: ABNORMAL BEHAVIOUR
     Route: 048
     Dates: start: 20070101

REACTIONS (3)
  - MOOD SWINGS [None]
  - ANGER [None]
  - DRUG DOSE OMISSION [None]
